FAERS Safety Report 8073344-2 (Version None)
Quarter: 2012Q1

REPORT INFORMATION
  Report Type: 
  Country: None (occurrence: None)
  Receive Date: 20120126
  Receipt Date: 20120113
  Transmission Date: 20120608
  Serious: Yes (Death, Hospitalization)
  Sender: FDA-Public Use
  Company Number: NL-ACTELION-A-CH2011-57214

PATIENT
  Sex: Female
  Weight: 72 kg

DRUGS (1)
  1. TRACLEER [Suspect]
     Indication: SKIN ULCER
     Dosage: 125 MG, BID
     Route: 048
     Dates: start: 20090303, end: 20110910

REACTIONS (3)
  - DEHYDRATION [None]
  - CARDIAC FAILURE [None]
  - SKIN ULCER [None]
